FAERS Safety Report 17605187 (Version 4)
Quarter: 2021Q4

REPORT INFORMATION
  Report Type: Report from Study
  Country: DE (occurrence: None)
  Receive Date: 20200331
  Receipt Date: 20211125
  Transmission Date: 20220303
  Serious: Yes (Death)
  Sender: FDA-Public Use
  Company Number: DE-ROCHE-2575457

PATIENT
  Age: 59 Year
  Sex: Male
  Weight: 102 kg

DRUGS (6)
  1. ATEZOLIZUMAB [Suspect]
     Active Substance: ATEZOLIZUMAB
     Indication: Gastric cancer
     Dosage: OVER 1 HOUR (4 CYCLES PERIOPERATIVE WITH FLOT) + DAY 1 Q3W: 1200 MG IV OVER 1 HOUR (8 ADDITIONAL C
     Route: 041
  2. ATEZOLIZUMAB [Suspect]
     Active Substance: ATEZOLIZUMAB
     Indication: Oesophageal adenocarcinoma
  3. FLUOROURACIL [Suspect]
     Active Substance: FLUOROURACIL
     Indication: Oesophageal adenocarcinoma
     Dosage: ON 11/MAR/2020 HE RECEIVED THE LAST DOSE OF THE INTRAVENOUS 5FU 5694 MG
     Route: 042
  4. LEUCOVORIN [Suspect]
     Active Substance: LEUCOVORIN
     Indication: Oesophageal adenocarcinoma
     Dosage: OVER ONE HOUR?ON 11/MAR/2020 HE RECEIVED THE LAST DOSE OF THE INTRAVENOUS LEUCOVARIN 438 MG
     Route: 042
  5. OXALIPLATIN [Suspect]
     Active Substance: OXALIPLATIN
     Indication: Oesophageal adenocarcinoma
     Dosage: IV OVER 2 HOURS?ON 11/MAR/2020 HE RECEIVED THE LAST DOSE OF THE OXALIPLATIN 186 MG
     Route: 042
  6. DOCETAXEL [Suspect]
     Active Substance: DOCETAXEL
     Indication: Oesophageal adenocarcinoma
     Dosage: OVER 1 HOUR?ON 11/MAR/2020 HE RECEIVED THE LAST DOSE OF THE DOCETAXEL 109 MG
     Route: 042

REACTIONS (4)
  - Sepsis [Fatal]
  - Autoimmune dermatitis [Not Recovered/Not Resolved]
  - Colitis [Not Recovered/Not Resolved]
  - Diarrhoea [Not Recovered/Not Resolved]

NARRATIVE: CASE EVENT DATE: 20200319
